FAERS Safety Report 9922648 (Version 1)
Quarter: 2014Q1

REPORT INFORMATION
  Report Type: Spontaneous
  Country: NP (occurrence: NP)
  Receive Date: 20140225
  Receipt Date: 20140225
  Transmission Date: 20141002
  Serious: Yes (Death, Hospitalization)
  Sender: FDA-Public Use
  Company Number: NP-ELI_LILLY_AND_COMPANY-NP201402006896

PATIENT
  Sex: Male

DRUGS (3)
  1. PEMETREXED [Suspect]
     Indication: LUNG ADENOCARCINOMA
     Dosage: UNK
  2. PEMETREXED [Suspect]
     Dosage: 800 MG, CYCLICAL
     Route: 042
  3. CARBOPLATIN [Concomitant]

REACTIONS (2)
  - Pneumonia [Fatal]
  - Off label use [Unknown]
